FAERS Safety Report 21674423 (Version 3)
Quarter: 2023Q1

REPORT INFORMATION
  Report Type: Spontaneous
  Country: GR (occurrence: GR)
  Receive Date: 20221202
  Receipt Date: 20230201
  Transmission Date: 20230417
  Serious: No
  Sender: FDA-Public Use
  Company Number: GR-PFIZER INC-PV202200108889

PATIENT
  Age: 13 Year
  Sex: Female
  Weight: 42 kg

DRUGS (2)
  1. GENOTROPIN [Suspect]
     Active Substance: SOMATROPIN
     Indication: Growth hormone deficiency
     Dosage: 10 MG, WEEKLY (1.8MG FOR 2 DAYS, 1.6MG FOR 4 DAYS AND 1 DAY OFF)/12 MG PEN
     Route: 058
     Dates: start: 202211
  2. GENOTROPIN [Suspect]
     Active Substance: SOMATROPIN
     Indication: Growth hormone deficiency
     Dosage: 10 MG, WEEKLY (1.8MG FOR 2 DAYS, 1.6MG FOR 4 DAYS AND 1 DAY OFF)/12 MG PEN
     Route: 058
     Dates: start: 202211

REACTIONS (1)
  - Wrong technique in device usage process [Unknown]

NARRATIVE: CASE EVENT DATE: 20221121
